FAERS Safety Report 8028657-7 (Version None)
Quarter: 2012Q1

REPORT INFORMATION
  Report Type: 
  Country: None (occurrence: None)
  Receive Date: 20120106
  Receipt Date: 20111228
  Transmission Date: 20120608
  Serious: Yes (Disabling)
  Sender: FDA-Public Use
  Company Number: FR-ACTELION-A-CH2011-53740

PATIENT
  Sex: Male
  Weight: 16 kg

DRUGS (1)
  1. ZAVESCA [Suspect]
     Indication: TAY-SACHS DISEASE
     Dosage: 100 MG, BID
     Route: 048
     Dates: start: 20100801, end: 20110501

REACTIONS (5)
  - BEDRIDDEN [None]
  - DRUG INEFFECTIVE FOR UNAPPROVED INDICATION [None]
  - NEUROLOGICAL DECOMPENSATION [None]
  - TAY-SACHS DISEASE [None]
  - DISEASE PROGRESSION [None]
